FAERS Safety Report 13029861 (Version 1)
Quarter: 2016Q4

REPORT INFORMATION
  Report Type: Spontaneous
  Country: US (occurrence: US)
  Receive Date: 20161214
  Receipt Date: 20161214
  Transmission Date: 20170207
  Serious: Yes (Hospitalization)
  Sender: FDA-Public Use
  Company Number: None

PATIENT
  Age: 74 Year
  Sex: Male
  Weight: 113.85 kg

DRUGS (2)
  1. RUXOLITINIB [Suspect]
     Active Substance: RUXOLITINIB
     Indication: CHRONIC MYELOID LEUKAEMIA
     Route: 048
     Dates: start: 20150519, end: 20161018
  2. RUXOLITINIB [Suspect]
     Active Substance: RUXOLITINIB
     Indication: CHRONIC MYELOID LEUKAEMIA
     Route: 048
     Dates: start: 20150408, end: 20150518

REACTIONS (7)
  - Respiratory failure [None]
  - Diarrhoea [None]
  - Splenomegaly [None]
  - Pneumonia [None]
  - Platelet count decreased [None]
  - White blood cell count increased [None]
  - Hepatitis acute [None]

NARRATIVE: CASE EVENT DATE: 20161017
